FAERS Safety Report 7568400-9 (Version None)
Quarter: 2011Q2

REPORT INFORMATION
  Report Type: 
  Country: None (occurrence: None)
  Receive Date: 20110623
  Receipt Date: 20110615
  Transmission Date: 20111010
  Serious: Yes (Other)
  Sender: FDA-Public Use
  Company Number: US-ROCHE-782998

PATIENT
  Sex: Male

DRUGS (1)
  1. ACCUTANE [Suspect]
     Indication: ACNE
     Route: 065
     Dates: start: 19980101

REACTIONS (5)
  - INFLAMMATORY BOWEL DISEASE [None]
  - GASTROINTESTINAL DISORDER [None]
  - COLITIS ULCERATIVE [None]
  - ANXIETY [None]
  - GASTROINTESTINAL INJURY [None]
